FAERS Safety Report 5610416-3 (Version None)
Quarter: 2008Q1

REPORT INFORMATION
  Report Type: 
  Country: None (occurrence: None)
  Receive Date: 20080128
  Receipt Date: 20080116
  Transmission Date: 20080703
  Serious: Yes (Life-Threatening, Hospitalization, Other)
  Sender: FDA-Public Use
  Company Number: 44652

PATIENT
  Age: 4 Year
  Sex: Male
  Weight: 15 kg

DRUGS (1)
  1. ATRACURIUM BESYLATE [Suspect]
     Indication: ANAESTHESIA
     Dosage: 0.5 MG/KG/IV
     Route: 042

REACTIONS (4)
  - APNOEA [None]
  - BRADYCARDIA [None]
  - MEDICATION ERROR [None]
  - WRONG DRUG ADMINISTERED [None]
